FAERS Safety Report 8471270-8 (Version None)
Quarter: 2012Q2

REPORT INFORMATION
  Report Type: 
  Country: None (occurrence: None)
  Receive Date: 20120627
  Receipt Date: 20120619
  Transmission Date: 20120825
  Serious: Yes (Hospitalization)
  Sender: FDA-Public Use
  Company Number: US-BAYER-2012-022096

PATIENT
  Age: 51 Year
  Sex: Female

DRUGS (7)
  1. LASIX [Concomitant]
  2. LISINOPRIL [Concomitant]
     Indication: HYPERTENSION
     Dosage: 30 MG, UNK
     Dates: start: 20080413, end: 20080526
  3. BYETTA [Concomitant]
     Indication: DIABETES MELLITUS
     Dosage: UNK MCG/ML, UNK
     Dates: start: 20080413, end: 20080608
  4. YAZ [Suspect]
     Route: 048
  5. YASMIN [Suspect]
     Route: 048
  6. POTASSIUM CHLORIDE [Concomitant]
     Indication: HYPERTENSION
     Dosage: 10 MEQ, UNK
     Dates: start: 20080413
  7. METFORMIN HCL [Concomitant]
     Indication: DIABETES MELLITUS
     Dosage: 500 MG, UNK
     Dates: start: 20080413, end: 20080526

REACTIONS (1)
  - DEEP VEIN THROMBOSIS [None]
